FAERS Safety Report 24391269 (Version 2)
Quarter: 2024Q4

REPORT INFORMATION
  Report Type: Spontaneous
  Country: US (occurrence: US)
  Receive Date: 20241003
  Receipt Date: 20241126
  Transmission Date: 20250114
  Serious: No
  Sender: PFIZER
  Company Number: US-PFIZER INC-202400263186

PATIENT
  Age: 14 Year
  Sex: Male
  Weight: 58.97 kg

DRUGS (2)
  1. GENOTROPIN [Suspect]
     Active Substance: SOMATROPIN
     Indication: Coeliac disease
     Dosage: 1.8 MG, 1X/DAY BY INJECTION
  2. GENOTROPIN [Suspect]
     Active Substance: SOMATROPIN
     Indication: Blood testosterone decreased

REACTIONS (4)
  - Device information output issue [Unknown]
  - Device use issue [Unknown]
  - Drug dose omission by device [Unknown]
  - Off label use [Unknown]

NARRATIVE: CASE EVENT DATE: 20240923
